FAERS Safety Report 19032179 (Version 1)
Quarter: 2021Q1

REPORT INFORMATION
  Report Type: Spontaneous
  Country: ES (occurrence: ES)
  Receive Date: 20210319
  Receipt Date: 20210319
  Transmission Date: 20210420
  Serious: Yes (Life-Threatening)
  Sender: FDA-Public Use
  Company Number: NVSC2021ES063057

PATIENT
  Age: 6 Year
  Sex: Male

DRUGS (1)
  1. KYMRIAH [Suspect]
     Active Substance: TISAGENLECLEUCEL
     Indication: B PRECURSOR TYPE ACUTE LEUKAEMIA
     Dosage: UNK TOTAL, 1.9 X10E9 CART/KG
     Route: 042
     Dates: start: 20210125, end: 20210125

REACTIONS (6)
  - Hepatomegaly [Recovered/Resolved]
  - Cytokine release syndrome [Recovered/Resolved]
  - Diabetes insipidus [Recovered/Resolved]
  - Hypoxia [Recovered/Resolved]
  - Disseminated intravascular coagulation [Recovered/Resolved]
  - Pyrexia [Recovered/Resolved]

NARRATIVE: CASE EVENT DATE: 20210126
